FAERS Safety Report 9313592 (Version 1)
Quarter: 2013Q2

REPORT INFORMATION
  Report Type: Spontaneous
  Country: US (occurrence: US)
  Receive Date: 20130528
  Receipt Date: 20130528
  Transmission Date: 20140414
  Serious: Yes (Hospitalization)
  Sender: FDA-Public Use
  Company Number: US-B.I. PHARMACEUTICALS,INC./RIDGEFIELD-2013-BI-13828BP

PATIENT
  Age: 75 Year
  Sex: Female
  Weight: 69 kg

DRUGS (14)
  1. SPIRIVA [Suspect]
     Indication: CHRONIC OBSTRUCTIVE PULMONARY DISEASE
     Dosage: 18 MCG
     Route: 055
     Dates: start: 2009
  2. SPIRIVA [Suspect]
     Indication: EMPHYSEMA
  3. FUROSEMIDE [Concomitant]
     Dosage: 40 MG
     Route: 048
  4. NITROFURANTOIN [Concomitant]
     Dosage: 50 MG
     Route: 048
  5. CLONAZEPAM [Concomitant]
     Route: 048
  6. PROAIR [Concomitant]
     Route: 055
  7. ASPIRIN [Concomitant]
     Dosage: 81 MG
     Route: 048
  8. TOVIAZ [Concomitant]
     Dosage: 4 MG
     Route: 048
  9. IPRATROPIUM/ALBUTEROL NEBULIZER [Concomitant]
     Route: 055
  10. LYRICA [Concomitant]
     Dosage: 150 MG
     Route: 048
  11. PREVACID [Concomitant]
     Dosage: 15 MG
     Route: 048
  12. PERCOCET [Concomitant]
     Dosage: STRENGTH: 7.5 MG / 325 MG;
     Route: 048
  13. TRAZODONE [Concomitant]
     Dosage: 100 MG
     Route: 048
  14. ADVAIR [Concomitant]
     Dosage: (POWDER) STRENGTH: 250/50; DAILY DOSE: 500/100
     Route: 055

REACTIONS (9)
  - Pneumonia [Recovered/Resolved]
  - Ulcer haemorrhage [Recovered/Resolved]
  - Arthritis [Recovered/Resolved]
  - Arthritis [Recovered/Resolved]
  - Thrombosis [Recovered/Resolved]
  - Femur fracture [Recovered/Resolved]
  - Urinary incontinence [Recovered/Resolved]
  - Fall [Recovered/Resolved]
  - Rib fracture [Not Recovered/Not Resolved]
